FAERS Safety Report 21965639 (Version 2)
Quarter: 2023Q1

REPORT INFORMATION
  Report Type: Spontaneous
  Country: US (occurrence: US)
  Receive Date: 20230208
  Receipt Date: 20230323
  Transmission Date: 20230418
  Serious: No
  Sender: FDA-Public Use
  Company Number: US-AMGEN-USASP2023020641

PATIENT
  Age: 63 Year
  Sex: Female

DRUGS (3)
  1. CARFILZOMIB [Suspect]
     Active Substance: CARFILZOMIB
     Indication: Plasma cell myeloma
     Dosage: 150 MILLIGRAM, Q4WK
     Route: 065
     Dates: start: 202110
  2. CARFILZOMIB [Suspect]
     Active Substance: CARFILZOMIB
     Dosage: 150 MILLIGRAM (ONCE EVERY 28 DAYS)
     Route: 065
     Dates: start: 20230313
  3. DARZALEX FASPRO [Concomitant]
     Active Substance: DARATUMUMAB\HYALURONIDASE-FIHJ
     Indication: Plasma cell myeloma
     Dosage: 1800 MILLIGRAM
     Dates: start: 202110

REACTIONS (2)
  - Wheezing [Recovered/Resolved]
  - Off label use [Unknown]

NARRATIVE: CASE EVENT DATE: 20211001
